FAERS Safety Report 13355405 (Version 2)
Quarter: 2017Q4

REPORT INFORMATION
  Report Type: Report from Study
  Country: GB (occurrence: GB)
  Receive Date: 20170321
  Receipt Date: 20171010
  Transmission Date: 20180320
  Serious: Yes (Life-Threatening, Hospitalization, Other)
  Sender: FDA-Public Use
  Company Number: GB-EMD SERONO-8136443

PATIENT
  Sex: Female

DRUGS (5)
  1. REBIF [Suspect]
     Active Substance: INTERFERON BETA-1A
     Indication: MULTIPLE SCLEROSIS
     Route: 058
     Dates: start: 20080220
  2. CLARITHROMYCIN. [Concomitant]
     Active Substance: CLARITHROMYCIN
     Indication: PRODUCT USED FOR UNKNOWN INDICATION
     Route: 048
  3. CO AMOXICLAV                       /00756801/ [Concomitant]
     Active Substance: AMOXICILLIN\CLAVULANIC ACID
     Indication: PRODUCT USED FOR UNKNOWN INDICATION
     Route: 048
  4. REBIF [Suspect]
     Active Substance: INTERFERON BETA-1A
     Dosage: 0.5 MILLILITER PRE FILLED DOSE 2X0.5 MILLILITER
     Route: 058
  5. PARACETAMOL [Concomitant]
     Active Substance: ACETAMINOPHEN
     Indication: PRODUCT USED FOR UNKNOWN INDICATION
     Dosage: CAPLET
     Route: 048

REACTIONS (7)
  - Pneumonia [Unknown]
  - Thrombophlebitis superficial [Unknown]
  - Bronchospasm [Unknown]
  - Bronchial wall thickening [Unknown]
  - Coma [Unknown]
  - Sepsis [Unknown]
  - Varicose vein [Unknown]
